FAERS Safety Report 6312916-X (Version None)
Quarter: 2009Q3

REPORT INFORMATION
  Report Type: 
  Country: None (occurrence: None)
  Receive Date: 20090817
  Receipt Date: 20090817
  Transmission Date: 20100115
  Serious: Yes (Other)
  Sender: FDA-Public Use
  Company Number: None

PATIENT
  Sex: Female
  Weight: 67.1324 kg

DRUGS (4)
  1. PAROXETINE HCL [Suspect]
     Indication: ANXIETY
     Dosage: 40MG ONCE A DAY PO
     Route: 048
     Dates: start: 20090616, end: 20090816
  2. PAROXETINE HCL [Suspect]
     Indication: DEPRESSION
     Dosage: 40MG ONCE A DAY PO
     Route: 048
     Dates: start: 20090616, end: 20090816
  3. ZOLPIDEM [Suspect]
     Indication: INSOMNIA
     Dosage: 10MG ONE AT BEDTIME PO
     Route: 048
     Dates: start: 20090616, end: 20090616
  4. PAXIL [Suspect]

REACTIONS (3)
  - DEPRESSION [None]
  - PRODUCT SUBSTITUTION ISSUE [None]
  - SUICIDAL IDEATION [None]
